FAERS Safety Report 5239021-8 (Version None)
Quarter: 2007Q1

REPORT INFORMATION
  Report Type: 
  Country: None (occurrence: None)
  Receive Date: 20070209
  Receipt Date: 20070205
  Transmission Date: 20070707
  Serious: Yes (Hospitalization)
  Sender: FDA-Public Use
  Company Number: MEDI-0005341

PATIENT
  Age: 70 Year
  Sex: Female
  Weight: 71.2147 kg

DRUGS (18)
  1. ETHYOL [Suspect]
     Indication: NON-SMALL CELL LUNG CANCER STAGE III
     Dosage: 500 MG, 1 IN 1 D, SUBCUTANEOUS
     Route: 058
     Dates: start: 20061016, end: 20061031
  2. ETHYOL [Suspect]
     Indication: PROPHYLAXIS
     Dosage: 500 MG, 1 IN 1 D, SUBCUTANEOUS
     Route: 058
     Dates: start: 20061016, end: 20061031
  3. ETHYOL [Suspect]
     Indication: NON-SMALL CELL LUNG CANCER STAGE III
     Dosage: 500 MG, 1 IN 1 D, SUBCUTANEOUS
     Route: 058
     Dates: start: 20061109, end: 20061109
  4. ETHYOL [Suspect]
     Indication: PROPHYLAXIS
     Dosage: 500 MG, 1 IN 1 D, SUBCUTANEOUS
     Route: 058
     Dates: start: 20061109, end: 20061109
  5. CARBOPLATIN [Concomitant]
  6. RADIATION THERAPY [Concomitant]
  7. TAXOL [Concomitant]
  8. CELEXA [Concomitant]
  9. ZOFRAN [Concomitant]
  10. MORPHINE SULFATE [Concomitant]
  11. COMPAZINE [Concomitant]
  12. XANAX [Concomitant]
  13. ATIVAN [Concomitant]
  14. PROTONIX [Concomitant]
  15. NYSTATIN [Concomitant]
  16. TYLENOL [Concomitant]
  17. KYTRIL [Concomitant]
  18. DIFLUCAN [Concomitant]

REACTIONS (18)
  - ABDOMINAL PAIN [None]
  - ALANINE AMINOTRANSFERASE INCREASED [None]
  - ASPARTATE AMINOTRANSFERASE INCREASED [None]
  - BLOOD ALKALINE PHOSPHATASE INCREASED [None]
  - BLOOD LACTATE DEHYDROGENASE INCREASED [None]
  - C-REACTIVE PROTEIN INCREASED [None]
  - DEHYDRATION [None]
  - HYPERSENSITIVITY [None]
  - HYPOTENSION [None]
  - MALNUTRITION [None]
  - MUSCULOSKELETAL CHEST PAIN [None]
  - ORAL CANDIDIASIS [None]
  - OXYGEN SATURATION DECREASED [None]
  - PYREXIA [None]
  - RADIATION OESOPHAGITIS [None]
  - SCHIZOPHRENIA [None]
  - TACHYCARDIA [None]
  - VOMITING [None]
